FAERS Safety Report 5624807-8 (Version None)
Quarter: 2008Q1

REPORT INFORMATION
  Report Type: 
  Country: None (occurrence: None)
  Receive Date: 20080213
  Receipt Date: 20080201
  Transmission Date: 20080703
  Serious: Yes (Other)
  Sender: FDA-Public Use
  Company Number: JP-ROCHE-545434

PATIENT
  Age: 48 Year
  Sex: Female

DRUGS (2)
  1. COPEGUS [Suspect]
     Route: 048
     Dates: start: 20070705
  2. PEGASYS [Suspect]
     Route: 058
     Dates: start: 20070705

REACTIONS (1)
  - DELIRIUM [None]
